FAERS Safety Report 7648120-2 (Version None)
Quarter: 2011Q3

REPORT INFORMATION
  Report Type: 
  Country: None (occurrence: None)
  Receive Date: 20110801
  Receipt Date: 20110722
  Transmission Date: 20111222
  Serious: Yes (Hospitalization)
  Sender: FDA-Public Use
  Company Number: US-ABBOTT-11P-163-0841216-00

PATIENT
  Sex: Female
  Weight: 111.68 kg

DRUGS (4)
  1. METFORMIN HCL [Concomitant]
     Indication: DIABETES MELLITUS
  2. GLIMEPIRIDE [Concomitant]
     Indication: DIABETES MELLITUS
  3. NIASPAN [Suspect]
     Indication: HYPERLIPIDAEMIA
     Dates: start: 20101201, end: 20110301
  4. LORAZEPAM [Concomitant]
     Indication: ANXIETY

REACTIONS (5)
  - FLUSHING [None]
  - DRUG INEFFECTIVE [None]
  - HYPERSENSITIVITY [None]
  - CHOLELITHIASIS [None]
  - DERMATITIS ALLERGIC [None]
